FAERS Safety Report 18154850 (Version 2)
Quarter: 2020Q4

REPORT INFORMATION
  Report Type: Spontaneous
  Country: US (occurrence: US)
  Receive Date: 20200817
  Receipt Date: 20201001
  Transmission Date: 20210113
  Serious: No
  Sender: FDA-Public Use
  Company Number: US-GILEAD-2020-0490247

PATIENT
  Sex: Female
  Weight: 92.97 kg

DRUGS (6)
  1. GABAPENTIN. [Concomitant]
     Active Substance: GABAPENTIN
     Dosage: UNK
     Dates: start: 2019
  2. GENVOYA [Concomitant]
     Active Substance: COBICISTAT\ELVITEGRAVIR\EMTRICITABINE\TENOFOVIR ALAFENAMIDE FUMARATE
  3. TRUVADA [Suspect]
     Active Substance: EMTRICITABINE\TENOFOVIR DISOPROXIL FUMARATE
     Indication: HIV INFECTION
     Dosage: UNK
     Route: 048
     Dates: start: 2012
  4. TRUVADA [Suspect]
     Active Substance: EMTRICITABINE\TENOFOVIR DISOPROXIL FUMARATE
     Dosage: UNK
     Route: 048
     Dates: start: 20131220, end: 20160313
  5. REYATAZ [Concomitant]
     Active Substance: ATAZANAVIR SULFATE
  6. NORVIR [Concomitant]
     Active Substance: RITONAVIR

REACTIONS (5)
  - Anhedonia [Unknown]
  - Anxiety [Unknown]
  - Bone density decreased [Not Recovered/Not Resolved]
  - Emotional distress [Unknown]
  - Pain [Unknown]

NARRATIVE: CASE EVENT DATE: 2017
